FAERS Safety Report 8795883 (Version 1)
Quarter: 2012Q4

REPORT INFORMATION
  Report Type: 
  Country: US (occurrence: US)
  Receive Date: 20120920
  Receipt Date: 20120920
  Transmission Date: 20130627
  Serious: No
  Sender: FDA-Public Use
  Company Number: US-B.I. PHARMACEUTICALS,INC./RIDGEFIELD-2012-BP-22521BP

PATIENT
  Sex: Female
  Weight: 70 kg

DRUGS (5)
  1. SPIRIVA [Suspect]
     Indication: EMPHYSEMA
     Dosage: 18 mcg
     Route: 055
     Dates: start: 2006
  2. PROAIR [Concomitant]
     Indication: EMPHYSEMA
     Route: 055
  3. ADVAIR [Concomitant]
     Indication: EMPHYSEMA
     Route: 055
     Dates: start: 2000
  4. ALBUTEROL [Concomitant]
     Indication: EMPHYSEMA
     Route: 055
     Dates: start: 1989
  5. OXYGEN [Concomitant]
     Indication: EMPHYSEMA

REACTIONS (1)
  - Dyspnoea [Not Recovered/Not Resolved]
